FAERS Safety Report 9468046 (Version 1)
Quarter: 2013Q3

REPORT INFORMATION
  Report Type: Spontaneous
  Country: US (occurrence: US)
  Receive Date: 20130821
  Receipt Date: 20130821
  Transmission Date: 20140515
  Serious: No
  Sender: FDA-Public Use
  Company Number: US-TEVA-427002USA

PATIENT
  Age: 54 Year
  Sex: Female
  Weight: 62.2 kg

DRUGS (5)
  1. NUVIGIL [Suspect]
     Route: 048
     Dates: start: 201307, end: 20130811
  2. LAMICTAL [Concomitant]
  3. SEROQUEL [Concomitant]
  4. ZOLOFT [Concomitant]
  5. LITHIUM [Concomitant]

REACTIONS (6)
  - Dyspnoea [Unknown]
  - Chest pain [Unknown]
  - Paraesthesia [Not Recovered/Not Resolved]
  - Pruritus [Not Recovered/Not Resolved]
  - Ocular hyperaemia [Not Recovered/Not Resolved]
  - Skin irritation [Not Recovered/Not Resolved]
